FAERS Safety Report 13759023 (Version 2)
Quarter: 2017Q3

REPORT INFORMATION
  Report Type: Spontaneous
  Country: JP (occurrence: JP)
  Receive Date: 20170717
  Receipt Date: 20170922
  Transmission Date: 20171127
  Serious: Yes (Hospitalization)
  Sender: FDA-Public Use
  Company Number: JP-ACTELION-A-CH2014-100318

PATIENT
  Age: 55 Year
  Sex: Female
  Weight: 49.5 kg

DRUGS (47)
  1. EPOPROSTENOL ACT [Suspect]
     Active Substance: EPOPROSTENOL
     Dosage: 10.4 NG/KG, PER MIN
     Route: 042
     Dates: start: 20140528
  2. ADCIRCA [Suspect]
     Active Substance: TADALAFIL
     Indication: PULMONARY ARTERIAL HYPERTENSION
     Dosage: 40 MG, QD
     Route: 048
     Dates: start: 20140514, end: 20150408
  3. ADCIRCA [Suspect]
     Active Substance: TADALAFIL
     Dosage: 5 MG, QD
     Route: 048
     Dates: start: 20170203, end: 20170216
  4. REVATIO [Suspect]
     Active Substance: SILDENAFIL CITRATE
     Indication: PULMONARY ARTERIAL HYPERTENSION
     Dosage: 40 MG, QD
     Route: 048
     Dates: start: 201109, end: 20140428
  5. REVATIO [Suspect]
     Active Substance: SILDENAFIL CITRATE
     Dosage: 30 MG, QD
     Route: 048
     Dates: start: 20150713, end: 20150716
  6. REVATIO [Suspect]
     Active Substance: SILDENAFIL CITRATE
     Dosage: 30 MG, QD
     Route: 048
     Dates: start: 20160222, end: 20160225
  7. REVATIO [Suspect]
     Active Substance: SILDENAFIL CITRATE
     Dosage: 60 MG, QD
     Route: 048
     Dates: start: 20160226, end: 20160412
  8. REVATIO [Suspect]
     Active Substance: SILDENAFIL CITRATE
     Dosage: 40 MG, QD
     Route: 048
     Dates: start: 20161116, end: 20170104
  9. REVATIO [Suspect]
     Active Substance: SILDENAFIL CITRATE
     Dosage: 30 MG, QD
     Route: 048
     Dates: start: 20170105, end: 20170116
  10. REVATIO [Suspect]
     Active Substance: SILDENAFIL CITRATE
     Dosage: 60 MG, QD
     Route: 048
     Dates: start: 20170126
  11. CARBOCISTEINE [Concomitant]
     Active Substance: CARBOCYSTEINE
     Indication: PRODUCT USED FOR UNKNOWN INDICATION
  12. EPOPROSTENOL ACT [Suspect]
     Active Substance: EPOPROSTENOL
     Dosage: 18.07 NG/KG, PER MIN
     Route: 042
     Dates: start: 20140729, end: 20140814
  13. EPOPROSTENOL ACT [Suspect]
     Active Substance: EPOPROSTENOL
     Dosage: 21.1 NG/KG, PER MIN
     Route: 042
     Dates: start: 20170313
  14. ADCIRCA [Suspect]
     Active Substance: TADALAFIL
     Dosage: 5 MG, QD
     Route: 048
     Dates: start: 20140502, end: 20140513
  15. REVATIO [Suspect]
     Active Substance: SILDENAFIL CITRATE
     Dosage: 60 MG, QD
     Route: 048
     Dates: start: 20140429, end: 20150712
  16. REVATIO [Suspect]
     Active Substance: SILDENAFIL CITRATE
     Dosage: 20 MG, QD
     Route: 048
     Dates: start: 20160801, end: 20160802
  17. REVATIO [Suspect]
     Active Substance: SILDENAFIL CITRATE
     Dosage: 30 MG, QD
     Route: 048
     Dates: start: 20160803, end: 20161115
  18. OXYGEN. [Concomitant]
     Active Substance: OXYGEN
  19. OPSUMIT [Suspect]
     Active Substance: MACITENTAN
     Indication: PULMONARY ARTERIAL HYPERTENSION
     Dosage: 10 MG, QD
     Route: 048
     Dates: start: 20150821, end: 20160706
  20. XYZAL [Suspect]
     Active Substance: LEVOCETIRIZINE DIHYDROCHLORIDE
     Indication: PRIMARY CILIARY DYSKINESIA
     Dosage: 5 MG, QD
     Route: 048
     Dates: start: 2014, end: 20150115
  21. TRACLEER [Concomitant]
     Active Substance: BOSENTAN
  22. REBAMIPIDE [Concomitant]
     Active Substance: REBAMIPIDE
  23. SINGULAIR [Suspect]
     Active Substance: MONTELUKAST SODIUM
     Indication: PRIMARY CILIARY DYSKINESIA
     Dosage: 10 MG, QD
     Route: 048
     Dates: start: 2014, end: 20150115
  24. ADCIRCA [Suspect]
     Active Substance: TADALAFIL
     Dosage: 40 MG, QD
     Route: 048
     Dates: start: 20170217
  25. ADEMPAS [Suspect]
     Active Substance: RIOCIGUAT
     Dosage: 7.5 MG, QD
     Route: 048
     Dates: start: 20150811, end: 20160116
  26. FLOLAN [Suspect]
     Active Substance: EPOPROSTENOL SODIUM
     Indication: PULMONARY ARTERIAL HYPERTENSION
     Dosage: 1.1 ML, QD
     Route: 065
     Dates: start: 20170301, end: 20170301
  27. THEOPHYLLIN [Concomitant]
     Active Substance: THEOPHYLLINE ANHYDROUS
  28. MAGNESIUM OXIDE. [Concomitant]
     Active Substance: MAGNESIUM OXIDE
  29. CLARITHROMYCIN. [Concomitant]
     Active Substance: CLARITHROMYCIN
     Indication: PRODUCT USED FOR UNKNOWN INDICATION
  30. EPOPROSTENOL ACT [Suspect]
     Active Substance: EPOPROSTENOL
     Dosage: 0.1 NG/KG, PER MIN
     Route: 042
     Dates: start: 20140429, end: 20140527
  31. REVATIO [Suspect]
     Active Substance: SILDENAFIL CITRATE
     Dosage: 40 MG, QD
     Route: 048
     Dates: start: 20160413, end: 20160510
  32. REVATIO [Suspect]
     Active Substance: SILDENAFIL CITRATE
     Dosage: 40 MG, QD
     Route: 048
     Dates: start: 20170117, end: 20170125
  33. VOLIBRIS [Suspect]
     Active Substance: AMBRISENTAN
     Indication: PULMONARY ARTERIAL HYPERTENSION
     Dosage: 0.5 MG, BID
     Route: 048
     Dates: start: 20170306, end: 20170308
  34. AMBROXOL [Concomitant]
     Active Substance: AMBROXOL
  35. POTASSIUM CHLORIDE. [Concomitant]
     Active Substance: POTASSIUM CHLORIDE
  36. EPOPROSTENOL ACT [Suspect]
     Active Substance: EPOPROSTENOL
     Dosage: 14.7 NG/KG, PER MIN
     Route: 042
     Dates: start: 20140627, end: 20140728
  37. EPOPROSTENOL ACT [Suspect]
     Active Substance: EPOPROSTENOL
     Dosage: 17.9 NG/KG, PER MIN
     Route: 042
     Dates: start: 20170428
  38. REVATIO [Suspect]
     Active Substance: SILDENAFIL CITRATE
     Dosage: 20 MG, QD
     Route: 048
     Dates: start: 20160511, end: 20160523
  39. RABEPRAZOLE NA [Suspect]
     Active Substance: RABEPRAZOLE SODIUM
     Indication: PRODUCT USED FOR UNKNOWN INDICATION
     Dosage: 10 MG, QD
     Route: 065
     Dates: start: 2015
  40. SENNOSIDE [Concomitant]
     Active Substance: SENNOSIDES
  41. PANCREATIC ENZYMES [Concomitant]
     Active Substance: UNSPECIFIED INGREDIENT
     Indication: PRODUCT USED FOR UNKNOWN INDICATION
  42. EPOPROSTENOL ACT [Suspect]
     Active Substance: EPOPROSTENOL
     Indication: PULMONARY ARTERIAL HYPERTENSION
     Dosage: 9.8 NG/KG, PER MIN
     Route: 042
     Dates: start: 20140528, end: 20140528
  43. EPOPROSTENOL ACT [Suspect]
     Active Substance: EPOPROSTENOL
     Dosage: 19.41 NG/KG, PER MIN
     Route: 042
     Dates: start: 20140815
  44. OPSUMIT [Suspect]
     Active Substance: MACITENTAN
     Dosage: 2.5 MG, QD
     Route: 048
     Dates: start: 20160725, end: 20170111
  45. ADEMPAS [Suspect]
     Active Substance: RIOCIGUAT
     Indication: PULMONARY ARTERIAL HYPERTENSION
     Dosage: 1.5 MG, QD
     Route: 048
     Dates: start: 20150713, end: 20150715
  46. AZITHROMYCIN ANHYDROUS. [Concomitant]
     Active Substance: AZITHROMYCIN ANHYDROUS
  47. BERAPROST [Concomitant]
     Active Substance: BERAPROST

REACTIONS (29)
  - Sputum retention [Recovering/Resolving]
  - Pneumonia [Recovered/Resolved]
  - Hiccups [Recovered/Resolved]
  - Oxygen saturation decreased [Recovering/Resolving]
  - Respiratory distress [Recovered/Resolved]
  - Eosinophil count increased [Recovered/Resolved]
  - Episcleritis [Recovering/Resolving]
  - Catheter site pain [Recovered/Resolved]
  - Catheter site swelling [Recovered/Resolved]
  - Hot flush [Recovered/Resolved]
  - Tachycardia [Recovering/Resolving]
  - Pyrexia [Recovered/Resolved]
  - Bronchiectasis [Recovered/Resolved]
  - Hyperhidrosis [Recovered/Resolved]
  - Palpitations [Recovered/Resolved with Sequelae]
  - Eosinophilic pneumonia [Recovered/Resolved]
  - Wheezing [Recovered/Resolved]
  - Nausea [Recovered/Resolved]
  - Vomiting [Recovered/Resolved]
  - Headache [Recovering/Resolving]
  - Pain in jaw [Recovering/Resolving]
  - Diarrhoea [Recovering/Resolving]
  - Anaphylactic reaction [Recovered/Resolved]
  - Pharyngeal oedema [Recovered/Resolved]
  - Dyspnoea [Recovered/Resolved]
  - Asthma [Recovered/Resolved]
  - Dyspnoea exertional [Recovering/Resolving]
  - Eosinophilic oesophagitis [Recovered/Resolved]
  - Abdominal distension [Recovering/Resolving]

NARRATIVE: CASE EVENT DATE: 20140528
